FAERS Safety Report 9805828 (Version 1)
Quarter: 2014Q1

REPORT INFORMATION
  Report Type: Spontaneous
  Country: CL (occurrence: CL)
  Receive Date: 20140109
  Receipt Date: 20140109
  Transmission Date: 20141002
  Serious: Yes (Death)
  Sender: FDA-Public Use
  Company Number: PHHY2014CL001921

PATIENT
  Age: 63 Year
  Sex: Male

DRUGS (4)
  1. ZOMETA [Suspect]
     Indication: METASTASES TO BONE
     Dosage: 4 MG, ONCE PER MONTH
     Route: 042
     Dates: start: 201306, end: 201312
  2. TRAMAL [Concomitant]
     Indication: PAIN MANAGEMENT
     Dosage: UNK UKN, Q8H
     Route: 048
     Dates: start: 201206
  3. PARACETAMOL [Concomitant]
     Indication: PAIN MANAGEMENT
     Dosage: UNK UKN, Q8H
     Route: 048
     Dates: start: 201206
  4. OMEPRAZOLE [Concomitant]
     Dosage: 1 DF, DAY
     Route: 048
     Dates: start: 201206

REACTIONS (1)
  - Pneumothorax [Fatal]
